FAERS Safety Report 5146681-9 (Version None)
Quarter: 2006Q4

REPORT INFORMATION
  Report Type: 
  Country: None (occurrence: None)
  Receive Date: 20061107
  Receipt Date: 20061107
  Transmission Date: 20070319
  Serious: Yes (Hospitalization, Other)
  Sender: FDA-Public Use
  Company Number: None

PATIENT
  Age: 76 Year
  Sex: Male
  Weight: 84 kg

DRUGS (13)
  1. DURATUSS 600MG/120MG UCB PHARMA [Suspect]
     Dosage: 1 TABLET DAILY PO
     Route: 048
     Dates: start: 20051231, end: 20060106
  2. TRAZODONE HCL [Concomitant]
  3. CARBIDOPA AND LEVODOPA [Concomitant]
  4. TAMSULIN [Concomitant]
  5. MESALAMINE [Concomitant]
  6. NAMENDA [Concomitant]
  7. ARICEPT [Concomitant]
  8. DETROL LA [Concomitant]
  9. ASPIRIN [Concomitant]
  10. PREVACID [Concomitant]
  11. MULTI-VITAMIN [Concomitant]
  12. ALLEGRA-D 12 HOUR [Concomitant]
  13. CITRUCEL [Concomitant]

REACTIONS (11)
  - ABNORMAL BEHAVIOUR [None]
  - BALANCE DISORDER [None]
  - DISORIENTATION [None]
  - DYSPNOEA [None]
  - HALLUCINATION, VISUAL [None]
  - HYPERVENTILATION [None]
  - MENTAL STATUS CHANGES [None]
  - MUSCLE SPASMS [None]
  - RESPIRATION ABNORMAL [None]
  - SPEECH DISORDER [None]
  - TREMOR [None]
